FAERS Safety Report 22102465 (Version 4)
Quarter: 2024Q1

REPORT INFORMATION
  Report Type: Spontaneous
  Country: US (occurrence: US)
  Receive Date: 20230316
  Receipt Date: 20240110
  Transmission Date: 20240410
  Serious: Yes (Death, Life-Threatening, Hospitalization, Other)
  Sender: FDA-Public Use
  Company Number: US-PFIZER INC-PV202300047178

PATIENT
  Age: 52 Year
  Sex: Male

DRUGS (10)
  1. AMIODARONE HYDROCHLORIDE [Suspect]
     Active Substance: AMIODARONE HYDROCHLORIDE
     Indication: Atrial fibrillation
     Dosage: 200 MG, 1X/DAY FOR GREATER THAN 1 YEAR
  2. TORSEMIDE [Concomitant]
     Active Substance: TORSEMIDE
     Dosage: 40 MG, 1X/DAY
  3. LOSARTAN [Concomitant]
     Active Substance: LOSARTAN
     Dosage: 25 MG, 1X/DAY
  4. TRAZODONE [Concomitant]
     Active Substance: TRAZODONE HYDROCHLORIDE
     Dosage: 50 MG, ONCE NIGHTLY
  5. ALLOPURINOL [Concomitant]
     Active Substance: ALLOPURINOL
     Dosage: 200 MG, 1X/DAY
  6. ATORVASTATIN [Concomitant]
     Active Substance: ATORVASTATIN
     Dosage: 20 MG, 1X/DAY
  7. CARVEDILOL [Concomitant]
     Active Substance: CARVEDILOL
     Dosage: 12.5 MG, 2X/DAY
  8. COLCHICINE [Concomitant]
     Active Substance: COLCHICINE
     Dosage: 0.6 MG, DAILY
  9. APIXABAN [Concomitant]
     Active Substance: APIXABAN
     Dosage: 5 MG, 2X/DAY
  10. SEVELAMER [Concomitant]
     Active Substance: SEVELAMER
     Dosage: 1600 MG, 3X/DAY

REACTIONS (11)
  - Cardiogenic shock [Fatal]
  - Thyrotoxic crisis [Fatal]
  - Cardio-respiratory arrest [Fatal]
  - Hyperthyroidism [Fatal]
  - Cardiomyopathy [Fatal]
  - Haemodynamic instability [Fatal]
  - Ventricular tachycardia [Fatal]
  - Cardiac failure [Fatal]
  - Pulmonary oedema [Fatal]
  - Lactic acidosis [Fatal]
  - Liver injury [Fatal]
